FAERS Safety Report 7333433-4 (Version None)
Quarter: 2011Q1

REPORT INFORMATION
  Report Type: 
  Country: None (occurrence: None)
  Receive Date: 20110304
  Receipt Date: 20110220
  Transmission Date: 20110831
  Serious: Yes (Hospitalization, Other)
  Sender: FDA-Public Use
  Company Number: PHHY2011CN08067

PATIENT
  Age: 22 Year
  Sex: Male

DRUGS (1)
  1. SEBIVO [Suspect]
     Indication: HEPATITIS B
     Dosage: 600 MG, QD
     Route: 048
     Dates: start: 20100401, end: 20110101

REACTIONS (21)
  - LACTIC ACIDOSIS [None]
  - BLOOD CREATINE PHOSPHOKINASE MB INCREASED [None]
  - HEPATITIS B [None]
  - NAUSEA [None]
  - ASPARTATE AMINOTRANSFERASE INCREASED [None]
  - MYALGIA [None]
  - MYOGLOBIN BLOOD INCREASED [None]
  - GAIT DISTURBANCE [None]
  - BLOOD PH DECREASED [None]
  - RHABDOMYOLYSIS [None]
  - PCO2 DECREASED [None]
  - BLOOD LACTATE DEHYDROGENASE INCREASED [None]
  - DYSPNOEA [None]
  - BLOOD CREATINE PHOSPHOKINASE INCREASED [None]
  - BLOOD LACTIC ACID INCREASED [None]
  - MULTI-ORGAN FAILURE [None]
  - DISTRIBUTIVE SHOCK [None]
  - COMA [None]
  - CARDIOVASCULAR DISORDER [None]
  - CHEST DISCOMFORT [None]
  - INFECTION [None]
